FAERS Safety Report 9750145 (Version 1)
Quarter: 2013Q4

REPORT INFORMATION
  Report Type: Spontaneous
  Country: GR (occurrence: GR)
  Receive Date: 20131212
  Receipt Date: 20131212
  Transmission Date: 20140711
  Serious: No
  Sender: FDA-Public Use
  Company Number: GR-GILEAD-GR-CVT-090802

PATIENT
  Sex: Male

DRUGS (1)
  1. RANEXA [Suspect]
     Indication: PRODUCT USED FOR UNKNOWN INDICATION
     Dates: start: 2009

REACTIONS (3)
  - Nightmare [Recovered/Resolved]
  - Stress [Recovered/Resolved]
  - Irritability [Recovered/Resolved]
